FAERS Safety Report 8399803-0 (Version None)
Quarter: 2012Q2

REPORT INFORMATION
  Report Type: 
  Country: None (occurrence: None)
  Receive Date: 20120531
  Receipt Date: 20120523
  Transmission Date: 20120825
  Serious: Yes (Other)
  Sender: FDA-Public Use
  Company Number: US-BAYER-200816408NA

PATIENT
  Age: 51 Year
  Sex: Female
  Weight: 64.091 kg

DRUGS (79)
  1. OMNISCAN [Suspect]
     Indication: VENOGRAM
     Route: 042
  2. OPTIMARK [Suspect]
     Indication: VENOGRAM
  3. LEVOTHROID [Concomitant]
     Dosage: AS OF 27-MAR-2007
     Route: 048
  4. ATENOLOL [Concomitant]
     Route: 048
  5. VICODIN [Concomitant]
  6. IMMUNE GLOBULIN NOS [Concomitant]
     Route: 042
     Dates: start: 20070725, end: 20070725
  7. TRAMADOL HCL [Concomitant]
  8. MAGNEVIST [Suspect]
     Indication: VENOUS PRESSURE INCREASED
     Dosage: UNK, ONCE
     Dates: start: 20041209, end: 20041209
  9. MAGNEVIST [Suspect]
     Indication: ARTERIOVENOUS FISTULA OPERATION
     Dates: start: 20061128, end: 20061128
  10. MAGNEVIST [Suspect]
     Indication: DIALYSIS DEVICE INSERTION
  11. MULTIHANCE [Suspect]
     Indication: FISTULOGRAM
  12. PROHANCE [Suspect]
     Indication: FISTULOGRAM
  13. PROTONIX [Concomitant]
  14. PRAVACHOL [Concomitant]
     Route: 048
  15. SENSIPAR [Concomitant]
     Dates: start: 20060101, end: 20070301
  16. SENSIPAR [Concomitant]
     Route: 048
  17. IMODIUM [Concomitant]
  18. IMMUNE GLOBULIN NOS [Concomitant]
     Route: 042
     Dates: start: 20070622, end: 20070622
  19. BENADRYL [Concomitant]
     Route: 048
     Dates: start: 20070620, end: 20070620
  20. FOSRENOL [Concomitant]
     Dosage: CHEW
     Route: 048
  21. NITROGLYCERIN [Concomitant]
     Route: 060
  22. MAGNEVIST [Suspect]
     Indication: DIALYSIS EFFICACY TEST
     Route: 042
     Dates: start: 20060926, end: 20060926
  23. PROHANCE [Suspect]
     Indication: NUCLEAR MAGNETIC RESONANCE IMAGING
     Route: 042
  24. CORTICOSTEROIDS [Concomitant]
  25. CALCIUM CARBONATE [Concomitant]
     Dosage: 2 TABLETS DAILY
     Route: 048
  26. RENAGEL [Concomitant]
     Dosage: 4-5 CAPSULES W/MEALS AND 3-4 CAPSULES W/SNACKS
     Route: 048
  27. PHOSLO [Concomitant]
     Dosage: 1 TABLET TID W/MEALS
  28. IMMUNE GLOBULIN NOS [Concomitant]
     Route: 042
     Dates: start: 20070615, end: 20070615
  29. IMMUNE GLOBULIN NOS [Concomitant]
     Route: 042
     Dates: start: 20070620, end: 20070620
  30. LOPERAMIDE [Concomitant]
     Route: 048
  31. OMNISCAN [Suspect]
     Indication: FISTULOGRAM
  32. PROHANCE [Suspect]
     Indication: VENOGRAM
  33. PROTONIX [Concomitant]
     Dosage: PER MR 24-APR-2007
     Route: 048
  34. NEPHRO-VITE [VITAMINS NOS] [Concomitant]
     Dosage: 1
     Route: 048
  35. ALLOPURINOL [Concomitant]
     Route: 048
  36. ALLOPURINOL [Concomitant]
     Dosage: MR 03-JUN-1996: QAM
  37. CYCLOSPORINE [Concomitant]
     Dosage: 100 MG Q AM AND 50 MG Q PM
  38. ACETAMINOPHEN [Concomitant]
     Route: 048
     Dates: start: 20070620, end: 20070620
  39. BENADRYL [Concomitant]
     Route: 048
     Dates: start: 20070613, end: 20070613
  40. OPTIMARK [Suspect]
     Indication: NUCLEAR MAGNETIC RESONANCE IMAGING
     Route: 042
  41. MULTIHANCE [Suspect]
     Indication: NUCLEAR MAGNETIC RESONANCE IMAGING
     Route: 042
  42. COUMADIN [Concomitant]
     Dosage: 1 TABLET SUNDAY AND THURSDAY; MR 29-JUL-2007 1 TABLET SUNDAY AND TUESDAY
  43. EPOETIN NOS [Concomitant]
  44. VITAMIN B12 [Concomitant]
     Dosage: 1,000 MCG/ML
  45. IMMUNE GLOBULIN NOS [Concomitant]
     Route: 042
     Dates: start: 20070613, end: 20070613
  46. ACETAMINOPHEN [Concomitant]
     Route: 048
     Dates: start: 20070615, end: 20070615
  47. UREACIN [Concomitant]
     Route: 061
  48. OMEPRAZOLE [Concomitant]
     Route: 048
  49. MAGNEVIST [Suspect]
     Indication: NUCLEAR MAGNETIC RESONANCE IMAGING
     Dosage: UNK, ONCE
     Dates: start: 20010111, end: 20010111
  50. OMNISCAN [Suspect]
     Indication: NUCLEAR MAGNETIC RESONANCE IMAGING
  51. AMIODARONE HCL [Concomitant]
     Dosage: PER MR 24-APR-2007 AND 15-MAY-2007
     Route: 048
  52. PROCARDIA XL [Concomitant]
     Route: 048
  53. PRILOSEC [Concomitant]
     Route: 048
  54. NIFEDIPINE [Concomitant]
  55. ACETAMINOPHEN [Concomitant]
     Route: 048
     Dates: start: 20070622, end: 20070622
  56. BENADRYL [Concomitant]
     Route: 048
     Dates: start: 20070615, end: 20070615
  57. BENADRYL [Concomitant]
     Route: 048
     Dates: start: 20070725, end: 20070725
  58. CALCITRIOL [Concomitant]
     Route: 048
  59. METOCLOPRAMIDE [Concomitant]
     Route: 048
  60. OPTIMARK [Suspect]
     Indication: FISTULOGRAM
  61. LEVOTHROID [Concomitant]
     Dosage: PER MR 24-APR-2007; 0.025 MG, TWO DAILY
  62. COUMADIN [Concomitant]
     Dosage: MON, TUES, WED, FRI, SAT 1/2 TABLET DAILY; MR 29-JUL-2007 1/2 TAB (M/W/THURS/FRI/SAT)
  63. COUMADIN [Concomitant]
     Route: 048
     Dates: end: 20070101
  64. CALCIUM CARBONATE [Concomitant]
     Route: 048
  65. PLENDIL [Concomitant]
     Route: 048
  66. ACETAMINOPHEN [Concomitant]
     Route: 048
     Dates: start: 20070613, end: 20070613
  67. ACETAMINOPHEN [Concomitant]
  68. ACETAMINOPHEN [Concomitant]
     Route: 048
     Dates: start: 20070725, end: 20070725
  69. BENADRYL [Concomitant]
     Route: 048
     Dates: start: 20070622, end: 20070622
  70. PEG-3350 AND ELECTROLYTES [Concomitant]
     Route: 048
  71. CARDIZEM [Concomitant]
  72. MULTIHANCE [Suspect]
     Indication: VENOGRAM
  73. PREDNISONE TAB [Concomitant]
     Dosage: MR OF 29-JUL-2007 TAPER OF PREDNISONE 40MG DAILY X 2 DAYS, THEN 20 MG DAILY X 2 DAYS, THEN OFF
     Dates: start: 20070729, end: 20070801
  74. ATENOLOL [Concomitant]
     Route: 048
  75. REGLAN [Concomitant]
  76. RENAGEL [Concomitant]
     Dosage: MR 29-JUL-2007: SIX TABLETS WITH MEALS, THREE TABLETS WITH SNACKS
  77. EPOGEN [Concomitant]
  78. PRAVASTATIN [Concomitant]
     Route: 048
  79. METOPROLOL TARTRATE [Concomitant]
     Indication: HYPERTENSION
     Dosage: UNK
     Dates: start: 20000101

REACTIONS (29)
  - JOINT RANGE OF MOTION DECREASED [None]
  - SKIN FISSURES [None]
  - ACTIVITIES OF DAILY LIVING IMPAIRED [None]
  - PAIN [None]
  - JOINT STIFFNESS [None]
  - MOBILITY DECREASED [None]
  - DYSSTASIA [None]
  - SKIN INDURATION [None]
  - PERIPHERAL COLDNESS [None]
  - SKIN EXFOLIATION [None]
  - SKIN DISCOLOURATION [None]
  - DERMATITIS [None]
  - SCAR [None]
  - DRY SKIN [None]
  - ANXIETY [None]
  - SKIN TIGHTNESS [None]
  - ERYTHEMA [None]
  - OEDEMA PERIPHERAL [None]
  - SCLERODACTYLIA [None]
  - SKIN HAEMORRHAGE [None]
  - NEPHROGENIC SYSTEMIC FIBROSIS [None]
  - PAIN IN EXTREMITY [None]
  - PRURITUS [None]
  - MOTOR DYSFUNCTION [None]
  - INJURY [None]
  - INSOMNIA [None]
  - BURNING SENSATION [None]
  - EMOTIONAL DISTRESS [None]
  - SKIN HYPERTROPHY [None]
